FAERS Safety Report 15436029 (Version 1)
Quarter: 2018Q3

REPORT INFORMATION
  Report Type: Spontaneous
  Country: TR (occurrence: TR)
  Receive Date: 20180927
  Receipt Date: 20180927
  Transmission Date: 20181010
  Serious: Yes (Other)
  Sender: FDA-Public Use
  Company Number: TR-FRESENIUS KABI-FK201810042

PATIENT
  Age: 23 Year
  Sex: Female

DRUGS (1)
  1. METOCLOPRAMIDE (MANUFACTURER UNKNOWN) [Suspect]
     Active Substance: METOCLOPRAMIDE
     Indication: VOMITING IN PREGNANCY
     Dosage: UNKNOWN
     Route: 042

REACTIONS (3)
  - Anaphylactic reaction [Recovered/Resolved]
  - Exposure during pregnancy [Unknown]
  - Kounis syndrome [Recovered/Resolved]
